FAERS Safety Report 21213299 (Version 1)
Quarter: 2022Q3

REPORT INFORMATION
  Report Type: Spontaneous
  Country: None (occurrence: PL)
  Receive Date: 20220815
  Receipt Date: 20220815
  Transmission Date: 20221026
  Serious: Yes (Life-Threatening, Other)
  Sender: FDA-Public Use
  Company Number: PL-B.Braun Medical Inc.-2131906

PATIENT
  Age: 62 Year
  Sex: Female
  Weight: 83 kg

DRUGS (4)
  1. STERILE WATER [Suspect]
     Active Substance: WATER
     Indication: Intervertebral disc disorder
     Route: 042
     Dates: start: 20180719, end: 20180719
  2. CEFUROXIME SODIUM [Suspect]
     Active Substance: CEFUROXIME SODIUM
  3. MIDAZOLAM [Suspect]
     Active Substance: MIDAZOLAM
  4. SODIUM CHLORIDE [Suspect]
     Active Substance: SODIUM CHLORIDE

REACTIONS (3)
  - Anaphylactic shock [Not Recovered/Not Resolved]
  - Resuscitation [Not Recovered/Not Resolved]
  - Endotracheal intubation [Not Recovered/Not Resolved]

NARRATIVE: CASE EVENT DATE: 20180719
